FAERS Safety Report 20975874 (Version 2)
Quarter: 2022Q2

REPORT INFORMATION
  Report Type: Spontaneous
  Country: ES (occurrence: ES)
  Receive Date: 20220617
  Receipt Date: 20220627
  Transmission Date: 20220720
  Serious: Yes (Hospitalization, Other)
  Sender: FDA-Public Use
  Company Number: ES-KYOWAKIRIN-2022BKK006539

PATIENT
  Age: 78 Year
  Sex: Male

DRUGS (5)
  1. GEMCITABINE HYDROCHLORIDE [Suspect]
     Active Substance: GEMCITABINE HYDROCHLORIDE
     Dosage: 6 CYCLES OF GEMCITABINE + TRIPLE INTRATHECAL
     Route: 037
  2. POTELIGEO [Suspect]
     Active Substance: MOGAMULIZUMAB-KPKC
     Indication: Marginal zone lymphoma
     Dosage: UNK
  3. POTELIGEO [Suspect]
     Active Substance: MOGAMULIZUMAB-KPKC
     Indication: Cutaneous T-cell lymphoma
     Dosage: 90 MG, WEEKLY
     Route: 042
  4. POTELIGEO [Suspect]
     Active Substance: MOGAMULIZUMAB-KPKC
     Indication: Lymphoproliferative disorder
  5. BEXAROTENE [Suspect]
     Active Substance: BEXAROTENE
     Dosage: UNK
     Route: 065
     Dates: start: 202007

REACTIONS (1)
  - Hypothyroidism [Unknown]
